FAERS Safety Report 16016706 (Version 2)
Quarter: 2019Q1

REPORT INFORMATION
  Report Type: Spontaneous
  Country: US (occurrence: US)
  Receive Date: 20190228
  Receipt Date: 20190309
  Transmission Date: 20190418
  Serious: Yes (Death)
  Sender: FDA-Public Use
  Company Number: PHHY2019US044246

PATIENT
  Sex: Female

DRUGS (1)
  1. GENTEAL NIGHT-TIME PM [Suspect]
     Active Substance: MINERAL OIL\PETROLATUM
     Indication: PRODUCT USED FOR UNKNOWN INDICATION
     Route: 047

REACTIONS (4)
  - Drug ineffective [Recovered/Resolved]
  - Vision blurred [Recovered/Resolved]
  - Death [Fatal]
  - Product physical consistency issue [Unknown]
